FAERS Safety Report 17121923 (Version 5)
Quarter: 2020Q1

REPORT INFORMATION
  Report Type: Report from Study
  Country: US (occurrence: US)
  Receive Date: 20191206
  Receipt Date: 20200131
  Transmission Date: 20200409
  Serious: Yes (Hospitalization, Other)
  Sender: FDA-Public Use
  Company Number: US-R-PHARM US LLC-2019RPM00020

PATIENT
  Age: 56 Year
  Sex: Female
  Weight: 65.5 kg

DRUGS (3)
  1. IXABEPILONE [Suspect]
     Active Substance: IXABEPILONE
     Dosage: 20 MG/M2, ON ^DAYS 1, 8, 15 OF 28 DAY^
     Route: 042
     Dates: start: 20191125, end: 20191212
  2. ZOFRAN [Concomitant]
     Active Substance: ONDANSETRON HYDROCHLORIDE
  3. IXABEPILONE [Suspect]
     Active Substance: IXABEPILONE
     Indication: OVARIAN CANCER RECURRENT
     Dosage: 20 MG/M2 ON ^DAYS 1, 8, 15 OF 28 DAY^
     Route: 042
     Dates: start: 20191023, end: 20191107

REACTIONS (12)
  - Pleural effusion [Not Recovered/Not Resolved]
  - Gastrooesophageal reflux disease [Unknown]
  - Lung infiltration [Unknown]
  - Off label use [Recovered/Resolved]
  - Metastases to liver [Not Recovered/Not Resolved]
  - Anaemia [Recovering/Resolving]
  - Atelectasis [Not Recovered/Not Resolved]
  - Ovarian cancer recurrent [Not Recovered/Not Resolved]
  - Ascites [Recovering/Resolving]
  - Fibrin D dimer increased [Unknown]
  - Acute kidney injury [Recovering/Resolving]
  - Dehydration [Recovering/Resolving]

NARRATIVE: CASE EVENT DATE: 20191023
